FAERS Safety Report 14326006 (Version 1)
Quarter: 2017Q4

REPORT INFORMATION
  Report Type: Spontaneous
  Country: KR (occurrence: KR)
  Receive Date: 20171226
  Receipt Date: 20171226
  Transmission Date: 20180321
  Serious: Yes (Other)
  Sender: FDA-Public Use
  Company Number: KR-IPSEN BIOPHARMACEUTICALS, INC.-2017-16171

PATIENT
  Age: 34 Year
  Sex: Female

DRUGS (2)
  1. BOTULINUM TOXIN TYPE A NOS [Suspect]
     Active Substance: BOTULINUM TOXIN TYPE A
     Indication: STRABISMUS
     Dosage: 2.5 UNITS
     Route: 030
  2. BOTULINUM TOXIN TYPE A NOS [Suspect]
     Active Substance: BOTULINUM TOXIN TYPE A
     Indication: OFF LABEL USE

REACTIONS (5)
  - Retinal detachment [Recovered/Resolved]
  - Retinopathy proliferative [Recovered/Resolved]
  - Off label use [Unknown]
  - Open globe injury [Recovered/Resolved]
  - Drug administration error [Unknown]
